FAERS Safety Report 7570060-8 (Version None)
Quarter: 2011Q2

REPORT INFORMATION
  Report Type: 
  Country: None (occurrence: None)
  Receive Date: 20110624
  Receipt Date: 20110621
  Transmission Date: 20111010
  Serious: Yes (Other)
  Sender: FDA-Public Use
  Company Number: JP-SANOFI-AVENTIS-2011SA039572

PATIENT
  Age: 33 Year
  Sex: Female
  Weight: 49.8 kg

DRUGS (5)
  1. PREDNISOLONE [Concomitant]
     Indication: RHEUMATOID ARTHRITIS
     Route: 048
     Dates: end: 20101011
  2. PREDNISOLONE [Concomitant]
     Indication: RHEUMATOID ARTHRITIS
     Route: 048
     Dates: end: 20101011
  3. FOLIC ACID [Concomitant]
     Indication: PROPHYLAXIS
     Route: 048
     Dates: start: 20091130, end: 20100913
  4. PREDNISOLONE [Concomitant]
     Route: 048
     Dates: start: 20101012
  5. ARAVA [Suspect]
     Indication: RHEUMATOID ARTHRITIS
     Route: 048
     Dates: start: 20100914, end: 20110409

REACTIONS (4)
  - PRURITUS [None]
  - ALANINE AMINOTRANSFERASE INCREASED [None]
  - INFLUENZA [None]
  - ASPARTATE AMINOTRANSFERASE INCREASED [None]
